FAERS Safety Report 17067226 (Version 7)
Quarter: 2022Q1

REPORT INFORMATION
  Report Type: Spontaneous
  Country: DE (occurrence: DE)
  Receive Date: 20191122
  Receipt Date: 20220316
  Transmission Date: 20220424
  Serious: Yes (Hospitalization)
  Sender: FDA-Public Use
  Company Number: DE-GLENMARK PHARMACEUTICALS-2018GMK037839

PATIENT
  Age: 66 Year
  Sex: Male

DRUGS (56)
  1. BUPRENORPHINE [Suspect]
     Active Substance: BUPRENORPHINE
     Indication: Analgesic therapy
     Dosage: 1 DF (EVERY SECOND DAY OF WEEK)
     Route: 062
  2. BUPRENORPHINE [Suspect]
     Active Substance: BUPRENORPHINE
     Dosage: 1 DF (EVERY SECOND DAY OF WEEK)
     Route: 065
  3. BUPRENORPHINE [Suspect]
     Active Substance: BUPRENORPHINE
     Dosage: 1 DF (EVERY SECOND DAY OF WEEK)
     Route: 062
  4. BUPRENORPHINE [Suspect]
     Active Substance: BUPRENORPHINE
     Dosage: 1 DF (EVERY SECOND DAY OF WEEK)
     Route: 062
  5. BUPRENORPHINE [Suspect]
     Active Substance: BUPRENORPHINE
     Dosage: 1 DF, UNK
     Route: 062
  6. CLOPIDOGREL [Suspect]
     Active Substance: CLOPIDOGREL BISULFATE
     Indication: Product used for unknown indication
     Dosage: 75 MG, DAILY (OD (1-0-0-0))
     Route: 065
  7. ASPIRIN [Suspect]
     Active Substance: ASPIRIN
     Indication: Product used for unknown indication
     Dosage: 100 MG, DAILY (OD (1-0-0-0))
     Route: 065
  8. METOPROLOL SUCCINATE [Suspect]
     Active Substance: METOPROLOL SUCCINATE
     Indication: Product used for unknown indication
     Dosage: 95 MG, DAILY (47.5 MG, BID (1-0-1-0))
     Route: 065
  9. RAMIPRIL [Suspect]
     Active Substance: RAMIPRIL
     Indication: Blood pressure increased
     Dosage: 10 MG, DAILY (5 MG, BID (1-0-1-0))
     Route: 065
  10. RAMIPRIL [Suspect]
     Active Substance: RAMIPRIL
     Dosage: 10 MG, DAILY (5 MG, BID (1-0-1-0))
     Route: 065
  11. RAMIPRIL [Suspect]
     Active Substance: RAMIPRIL
     Dosage: 5 MG, BID
     Route: 065
  12. RAMIPRIL [Suspect]
     Active Substance: RAMIPRIL
     Dosage: 5 MG, BID (1-0-1-0)
     Route: 065
  13. RAMIPRIL [Suspect]
     Active Substance: RAMIPRIL
     Dosage: 5 MG, BID
     Route: 065
  14. TRIAMTERENE AND HYDROCHLOROTHIAZIDE [Suspect]
     Active Substance: HYDROCHLOROTHIAZIDE\TRIAMTERENE
     Indication: Product used for unknown indication
     Dosage: 1 DF, DAILY (OD (1-0-0-0))
     Route: 065
  15. PANTOPRAZOLE [Suspect]
     Active Substance: PANTOPRAZOLE
     Indication: Product used for unknown indication
     Dosage: 40 MG, DAILY (OD (1-0-0-0-0))
     Route: 065
  16. DULOXETINE HYDROCHLORIDE [Suspect]
     Active Substance: DULOXETINE HYDROCHLORIDE
     Indication: Depression
     Dosage: 60 MG, DAILY (OD (1-0-0-0))
     Route: 065
     Dates: start: 201710, end: 201805
  17. AMITRIPTYLINE [Suspect]
     Active Substance: AMITRIPTYLINE
     Indication: Product used for unknown indication
     Dosage: 25 MG, HS (AT NIGHT)
     Route: 065
  18. AMITRIPTYLINE [Suspect]
     Active Substance: AMITRIPTYLINE
     Dosage: 25 MG, DAILY (AT NIGHT)
     Route: 065
  19. SIMVASTATIN [Suspect]
     Active Substance: SIMVASTATIN
     Indication: Product used for unknown indication
     Dosage: 40 MG, DAILY (OD (0-0-1-0))
     Route: 065
  20. AMLODIPINE BESYLATE [Suspect]
     Active Substance: AMLODIPINE BESYLATE
     Indication: Product used for unknown indication
     Dosage: 5 MG, DAILY (OD (1-0-0-0))
     Route: 065
  21. AMLODIPINE BESYLATE [Suspect]
     Active Substance: AMLODIPINE BESYLATE
     Indication: Product used for unknown indication
  22. EZETIMIBE [Suspect]
     Active Substance: EZETIMIBE
     Indication: Product used for unknown indication
     Dosage: 10 MG, DAILY ( OD (1-0-0-0))
     Route: 065
  23. METAMIZOLE [Suspect]
     Active Substance: METAMIZOLE
     Indication: Product used for unknown indication
     Dosage: 4000 MG, DAILY (1000 MG, QID (500 MG (2-2-2-2)))
     Route: 065
  24. METAMIZOLE [Suspect]
     Active Substance: METAMIZOLE
     Indication: Product used for unknown indication
  25. METFORMIN [Suspect]
     Active Substance: METFORMIN HYDROCHLORIDE
     Indication: Product used for unknown indication
     Dosage: 1000 MG, DAILY (OD (0-0-1-0))
     Route: 065
  26. IBUPROFEN [Suspect]
     Active Substance: IBUPROFEN
     Indication: Analgesic therapy
     Dosage: 1800 MG, DAILY (600 MG, TID)
     Route: 065
  27. ZOLPIDEM [Suspect]
     Active Substance: ZOLPIDEM TARTRATE
     Indication: Product used for unknown indication
     Dosage: 5 MG, DAILY (5 MG, OD)
     Route: 065
  28. ASPIRIN [Concomitant]
     Active Substance: ASPIRIN
     Indication: Product used for unknown indication
     Dosage: 100 MG, DAILY (OD (1-0-0-0))
     Route: 065
  29. TAMSULOSIN [Concomitant]
     Active Substance: TAMSULOSIN
     Indication: Product used for unknown indication
     Dosage: 0.4 MG, DAILY (OD)
     Route: 065
  30. RAMIPRIL [Concomitant]
     Active Substance: RAMIPRIL
     Indication: Blood pressure increased
     Dosage: 10 MG, DAILY (OD)
     Route: 065
  31. RAMIPRIL [Concomitant]
     Active Substance: RAMIPRIL
     Indication: Product used for unknown indication
     Dosage: 10 MG, DAILY (OD)
     Route: 065
  32. RAMIPRIL [Concomitant]
     Active Substance: RAMIPRIL
     Dosage: 10 MG, DAILY (OD)
     Route: 065
  33. BUPRENORPHINE [Concomitant]
     Active Substance: BUPRENORPHINE
     Indication: Analgesic therapy
     Dosage: 1 DF, BIW (TWICE WEEKLY0
     Route: 065
  34. BUPRENORPHINE [Concomitant]
     Active Substance: BUPRENORPHINE
     Dosage: 1 DF, 2X/WEEK
  35. BUPRENORPHINE [Concomitant]
     Active Substance: BUPRENORPHINE
     Dosage: 1 DF, UNK (TWICE WEEKLY)
  36. BUPRENORPHINE [Concomitant]
     Active Substance: BUPRENORPHINE
     Dosage: 1 DF, UNK (TWICE WEEKLY)
  37. NOVALGIN (METAMIZOLE SODIUM) [Concomitant]
     Active Substance: METAMIZOLE SODIUM
     Indication: Analgesic therapy
     Dosage: 1 G (4 TO 5 TIMES)
     Route: 065
  38. NOVALGIN (METAMIZOLE SODIUM) [Concomitant]
     Active Substance: METAMIZOLE SODIUM
     Dosage: 500 MG, Q3H (500 MG, UNK (8 TIME DAILY))
     Route: 065
  39. NOVALGIN (METAMIZOLE SODIUM) [Concomitant]
     Active Substance: METAMIZOLE SODIUM
     Dosage: 500 MG, UNK (8 TIME DAILY)
  40. NOVALGIN (METAMIZOLE SODIUM) [Concomitant]
     Active Substance: METAMIZOLE SODIUM
     Route: 065
  41. MCP                                /00041901/ [Concomitant]
     Indication: Product used for unknown indication
     Dosage: 30 MG, DAILY (10 MG, TID)
     Route: 065
  42. MCP                                /00041901/ [Concomitant]
     Dosage: 10 MG, DAILY (OD)
     Route: 065
  43. MCP                                /00041901/ [Concomitant]
     Dosage: 30 MG, TID
  44. MCP                                /00041901/ [Concomitant]
     Dosage: 10 MG, DAILY
  45. MCP                                /00041901/ [Concomitant]
     Dosage: 30 MG, DAILY
  46. MCP                                /00041901/ [Concomitant]
     Route: 065
  47. MCP                                /00041901/ [Concomitant]
     Dosage: 30 MG, DAILY
  48. MCP                                /00041901/ [Concomitant]
     Dosage: 10 MG, DAILY
  49. TERBINAFINE [Concomitant]
     Active Substance: TERBINAFINE
     Indication: Product used for unknown indication
     Dosage: 450 MG, DAILY (OD)
     Route: 065
  50. ISMN AL [Concomitant]
     Indication: Angina pectoris
     Dosage: UNK
     Route: 065
  51. PANTOZOL                           /01263204/ [Concomitant]
     Indication: Product used for unknown indication
     Dosage: 80 MG, DAILY (40 MG, BID)
     Route: 065
  52. PANTOZOL                           /01263204/ [Concomitant]
     Dosage: 40 MG, DAILY (OD (1-0-0-0))
     Route: 065
  53. BENZTHIAZIDE\TRIAMTERENE [Concomitant]
     Active Substance: BENZTHIAZIDE\TRIAMTERENE
     Indication: Product used for unknown indication
     Dosage: 1 DF, DAILY (OD)
     Route: 065
  54. VALSARTAN [Concomitant]
     Active Substance: VALSARTAN
     Indication: Product used for unknown indication
     Dosage: UNK
     Route: 065
  55. TRAMADOL [Concomitant]
     Active Substance: TRAMADOL
     Indication: Pain
     Dosage: 50 MG, UNK
     Route: 065
     Dates: start: 20180213
  56. METOHEXAL                          /00376903/ [Concomitant]
     Indication: Product used for unknown indication
     Dosage: 95 MG, DAILY (47.5 MG, BID (1-0-1-0))
     Route: 065

REACTIONS (5)
  - Impetigo [Recovered/Resolved]
  - Seborrhoeic dermatitis [Unknown]
  - Product substitution issue [Unknown]
  - Eczema [Recovered/Resolved]
  - Pruritus [Unknown]

NARRATIVE: CASE EVENT DATE: 20171001
